FAERS Safety Report 4877118-2 (Version None)
Quarter: 2005Q4

REPORT INFORMATION
  Report Type: 
  Country: None (occurrence: None)
  Receive Date: 20051206
  Receipt Date: 20050808
  Transmission Date: 20060501
  Serious: No
  Sender: FDA-Public Use
  Company Number: USA0508104884

PATIENT
  Age: 70 Year
  Sex: Female

DRUGS (1)
  1. CYMBALTA [Suspect]
     Indication: DEPRESSION
     Dosage: 30 MG
     Dates: start: 20050801

REACTIONS (5)
  - ABDOMINAL DISTENSION [None]
  - BREAST DISCHARGE [None]
  - BREAST SWELLING [None]
  - DYSURIA [None]
  - OEDEMA PERIPHERAL [None]
